FAERS Safety Report 17661870 (Version 4)
Quarter: 2020Q3

REPORT INFORMATION
  Report Type: Not Available
  Country: US (occurrence: US)
  Receive Date: 20200413
  Receipt Date: 20200713
  Transmission Date: 20201102
  Serious: No
  Sender: FDA-Public Use
  Company Number: US-NEUROCRINE BIOSCIENCES INC.-2020NBI01128

PATIENT
  Age: 64 Year
  Sex: Male

DRUGS (3)
  1. CLOZAPINE. [Suspect]
     Active Substance: CLOZAPINE
     Dosage: DECREASE DOSE
  2. LORAZEPAM. [Suspect]
     Active Substance: LORAZEPAM
  3. INGREZZA [Suspect]
     Active Substance: VALBENAZINE
     Indication: TARDIVE DYSKINESIA
     Route: 048
     Dates: start: 20190308

REACTIONS (8)
  - Cystitis [Recovered/Resolved]
  - Sedation [Unknown]
  - Enuresis [Recovering/Resolving]
  - Urinary retention [Unknown]
  - Gait inability [Recovered/Resolved]
  - Fall [Unknown]
  - Catheter site injury [Recovering/Resolving]
  - Fatigue [Unknown]

NARRATIVE: CASE EVENT DATE: 20200323
